FAERS Safety Report 7039612-8 (Version None)
Quarter: 2010Q4

REPORT INFORMATION
  Report Type: 
  Country: None (occurrence: None)
  Receive Date: 20101012
  Receipt Date: 20101005
  Transmission Date: 20110411
  Serious: Yes (Hospitalization, Disabling, Other)
  Sender: FDA-Public Use
  Company Number: A0880306A

PATIENT
  Age: 68 Year
  Sex: Male

DRUGS (13)
  1. ALKERAN [Suspect]
     Dosage: 1INJ SINGLE DOSE
     Route: 042
     Dates: start: 20100831, end: 20100831
  2. ACYCLOVIR SODIUM [Concomitant]
  3. CIPROFLOXACIN [Concomitant]
  4. GABAPENTIN [Concomitant]
  5. PRILOSEC [Concomitant]
  6. METRONIDAZOLE [Concomitant]
  7. OMEPRAZOLE [Concomitant]
  8. PROCHLORPERAZINE [Concomitant]
  9. CLONAZEPAM [Concomitant]
  10. LORAZEPAM [Concomitant]
  11. ZOFRAN [Concomitant]
  12. OXYCODONE [Concomitant]
  13. AMBIEN [Concomitant]

REACTIONS (1)
  - MYOCLONUS [None]
